FAERS Safety Report 23631837 (Version 1)
Quarter: 2024Q1

REPORT INFORMATION
  Report Type: Spontaneous
  Country: US (occurrence: None)
  Receive Date: 20240313
  Receipt Date: 20240313
  Transmission Date: 20240410
  Serious: Yes (Hospitalization)
  Sender: FDA-Public Use
  Company Number: None

PATIENT
  Age: 70 Year
  Sex: Male

DRUGS (1)
  1. OPSUMIT [Suspect]
     Active Substance: MACITENTAN
     Indication: Pulmonary hypertension
     Dosage: FREQUENCY : DAILY;?
     Route: 048
     Dates: start: 20200914, end: 20230816

REACTIONS (5)
  - Fluid retention [None]
  - Therapy cessation [None]
  - Drug ineffective [None]
  - Coronary artery disease [None]
  - Disease progression [None]

NARRATIVE: CASE EVENT DATE: 20230814
